FAERS Safety Report 8524410-6 (Version None)
Quarter: 2012Q3

REPORT INFORMATION
  Report Type: 
  Country: None (occurrence: None)
  Receive Date: 20120716
  Receipt Date: 20120716
  Transmission Date: 20120928
  Serious: Yes (Hospitalization)
  Sender: FDA-Public Use
  Company Number: None

PATIENT
  Age: 53 Year
  Sex: Male
  Weight: 75.9 kg

DRUGS (1)
  1. CITALOPRAM HYDROBROMIDE [Suspect]
     Dosage: MG PO
     Route: 048
     Dates: start: 20110519, end: 20120701

REACTIONS (9)
  - HYPONATRAEMIA [None]
  - DIZZINESS [None]
  - FALL [None]
  - INAPPROPRIATE ANTIDIURETIC HORMONE SECRETION [None]
  - HEAD INJURY [None]
  - CHEST PAIN [None]
  - SYNCOPE [None]
  - CHROMATURIA [None]
  - HYPOVOLAEMIA [None]
